FAERS Safety Report 8890206 (Version 1)
Quarter: 2012Q4

REPORT INFORMATION
  Report Type: 
  Country: US (occurrence: US)
  Receive Date: 20121107
  Receipt Date: 20121107
  Transmission Date: 20130627
  Serious: Yes (Other)
  Sender: FDA-Public Use
  Company Number: US-JNJFOC-20121015415

PATIENT
  Sex: Female
  Weight: 63.5 kg

DRUGS (2)
  1. DURAGESIC [Suspect]
     Indication: PAIN
     Dosage: NDC 5045809305
     Route: 062
     Dates: start: 201201, end: 20121023
  2. DURAGESIC [Suspect]
     Indication: PAIN
     Route: 062
     Dates: start: 20121024

REACTIONS (14)
  - Cartilage injury [Recovered/Resolved]
  - Smear cervix abnormal [Unknown]
  - Arthritis [Unknown]
  - Product quality issue [Unknown]
  - Application site reaction [Recovered/Resolved]
  - Gait disturbance [Unknown]
  - Back disorder [Unknown]
  - Hot flush [Unknown]
  - Product quality issue [Unknown]
  - Wrong technique in drug usage process [Not Recovered/Not Resolved]
  - Product quality issue [Not Recovered/Not Resolved]
  - Drug administered at inappropriate site [Recovered/Resolved]
  - Product quality issue [Unknown]
  - Drug ineffective [Unknown]
